FAERS Safety Report 18323961 (Version 2)
Quarter: 2020Q4

REPORT INFORMATION
  Report Type: Spontaneous
  Country: US (occurrence: US)
  Receive Date: 20200929
  Receipt Date: 20201005
  Transmission Date: 20210113
  Serious: Yes (Other)
  Sender: FDA-Public Use
  Company Number: US-PFIZER INC-2020374025

PATIENT
  Age: 60 Year
  Sex: Male

DRUGS (8)
  1. STREPTOMYCIN [Concomitant]
     Active Substance: STREPTOMYCIN SULFATE
     Dosage: 1 G, 2X/WEEK
     Route: 030
     Dates: start: 195005
  2. STREPTOMYCIN [Concomitant]
     Active Substance: STREPTOMYCIN SULFATE
     Dosage: 0.5 G, DAILY
     Route: 030
     Dates: start: 19511002, end: 19520613
  3. DEMEROL [Interacting]
     Active Substance: MEPERIDINE HYDROCHLORIDE
     Indication: IRRITABLE BOWEL SYNDROME
  4. DEMEROL [Suspect]
     Active Substance: MEPERIDINE HYDROCHLORIDE
     Indication: PYLOROSPASM
     Dosage: 100 MG
     Route: 030
     Dates: start: 19520422
  5. PAS [Concomitant]
     Active Substance: AMINOSALICYLIC ACID
     Dosage: 8 G, DAILY
     Dates: start: 195005, end: 19520322
  6. IPRONIAZID [Interacting]
     Active Substance: IPRONIAZID
     Dosage: 250 MG, DAILY ((ABOUT 5 MG./KG.)
     Dates: start: 19520322, end: 19520924
  7. PAS [Concomitant]
     Active Substance: AMINOSALICYLIC ACID
     Dosage: 12 G, DAILY
     Dates: start: 19511002
  8. IPRONIAZID [Interacting]
     Active Substance: IPRONIAZID
     Indication: PULMONARY TUBERCULOSIS
     Dosage: UNK
     Dates: start: 195202

REACTIONS (5)
  - Hyperreflexia [Recovered/Resolved]
  - Extensor plantar response [Recovered/Resolved]
  - Drug interaction [Recovered/Resolved]
  - Muscle twitching [Recovered/Resolved]
  - Hyperhidrosis [Recovered/Resolved]
